FAERS Safety Report 9277543 (Version 1)
Quarter: 2013Q2

REPORT INFORMATION
  Report Type: Report from Study
  Country: ES (occurrence: ES)
  Receive Date: 20130508
  Receipt Date: 20130508
  Transmission Date: 20140414
  Serious: Yes (Death)
  Sender: FDA-Public Use
  Company Number: ES-MILLENNIUM PHARMACEUTICALS, INC.-2013-03505

PATIENT
  Sex: 0

DRUGS (3)
  1. VELCADE [Suspect]
     Indication: MANTLE CELL LYMPHOMA
     Dosage: UNK
     Route: 065
     Dates: start: 20100216
  2. RITUXIMAB [Concomitant]
     Indication: MANTLE CELL LYMPHOMA
     Dosage: UNK
     Dates: start: 20100216
  3. DEXAMETHASONE [Concomitant]
     Indication: MANTLE CELL LYMPHOMA
     Dosage: UNK
     Dates: start: 20100216

REACTIONS (1)
  - Death [Fatal]
